FAERS Safety Report 20292342 (Version 1)
Quarter: 2022Q1

REPORT INFORMATION
  Report Type: Spontaneous
  Country: CA (occurrence: CA)
  Receive Date: 20220104
  Receipt Date: 20220104
  Transmission Date: 20220423
  Serious: Yes (Other)
  Sender: FDA-Public Use
  Company Number: CA-PFIZER INC-202101587188

PATIENT
  Age: 80 Year
  Sex: Male

DRUGS (11)
  1. VYNDAQEL [Suspect]
     Active Substance: TAFAMIDIS MEGLUMINE
     Indication: Cardiac amyloidosis
     Dosage: 80 MG, 1X/DAY
     Route: 048
     Dates: start: 20210724
  2. ATORVASTATIN [Concomitant]
     Active Substance: ATORVASTATIN
  3. METOLAZONE [Concomitant]
     Active Substance: METOLAZONE
  4. INSULIN NOS [Concomitant]
     Active Substance: INSULIN NOS
  5. TAMSULOSIN [Concomitant]
     Active Substance: TAMSULOSIN
  6. AMLODIPINE [Concomitant]
     Active Substance: AMLODIPINE BESYLATE
  7. PANTOPRAZOLE [Concomitant]
     Active Substance: PANTOPRAZOLE
  8. CANDESARTAN [Concomitant]
     Active Substance: CANDESARTAN
  9. ASPIRIN [Concomitant]
     Active Substance: ASPIRIN
  10. SPIRONOLACTONE [Concomitant]
     Active Substance: SPIRONOLACTONE
  11. LASIX FAIBLE [Concomitant]

REACTIONS (5)
  - Cardiac failure chronic [Unknown]
  - Dyspnoea [Unknown]
  - Muscle spasms [Unknown]
  - Iron deficiency anaemia [Unknown]
  - Gamma-glutamyltransferase increased [Unknown]
